FAERS Safety Report 6448373-2 (Version None)
Quarter: 2009Q4

REPORT INFORMATION
  Report Type: 
  Country: None (occurrence: None)
  Receive Date: 20091120
  Receipt Date: 20091116
  Transmission Date: 20100525
  Serious: Yes (Other)
  Sender: FDA-Public Use
  Company Number: US-MYLANLABS-2009S1019756

PATIENT
  Age: 69 Year
  Sex: Male

DRUGS (5)
  1. METOPROLOL TARTRATE [Suspect]
     Indication: CARDIAC OPERATION
     Route: 048
     Dates: start: 20091106, end: 20091114
  2. METOPROLOL TARTRATE [Suspect]
     Route: 048
     Dates: start: 20091114, end: 20091116
  3. METOPROLOL TARTRATE [Suspect]
     Route: 048
     Dates: start: 20091116
  4. PLAVIX [Concomitant]
  5. DIOVAN [Concomitant]

REACTIONS (4)
  - CHEST DISCOMFORT [None]
  - HEART RATE DECREASED [None]
  - HEART RATE IRREGULAR [None]
  - HYPOTENSION [None]
